FAERS Safety Report 22710766 (Version 4)
Quarter: 2023Q4

REPORT INFORMATION
  Report Type: Spontaneous
  Country: US (occurrence: US)
  Receive Date: 20230717
  Receipt Date: 20231109
  Transmission Date: 20240110
  Serious: No
  Sender: FDA-Public Use
  Company Number: US-PFIZER INC-202300250448

PATIENT
  Age: 15 Year
  Sex: Male
  Weight: 63.5 kg

DRUGS (1)
  1. GENOTROPIN [Suspect]
     Active Substance: SOMATROPIN
     Dosage: 2.4MG ALTERNATING WITH 2.6MG

REACTIONS (5)
  - Poor quality device used [Unknown]
  - Device breakage [Unknown]
  - Device environmental compatibility issue [Unknown]
  - Device physical property issue [Unknown]
  - Circumstance or information capable of leading to medication error [Unknown]
